FAERS Safety Report 5962220-4 (Version None)
Quarter: 2008Q4

REPORT INFORMATION
  Report Type: 
  Country: None (occurrence: None)
  Receive Date: 20081121
  Receipt Date: 20081117
  Transmission Date: 20090506
  Serious: Yes (Other)
  Sender: FDA-Public Use
  Company Number: GB-ASTRAZENECA-2008GB02173

PATIENT
  Age: 60 Year
  Sex: Female
  Weight: 114 kg

DRUGS (2)
  1. TAMOXIFEN [Suspect]
     Indication: BREAST CANCER RECURRENT
     Route: 048
     Dates: start: 20081001
  2. VENLAFAXINE HCL [Suspect]
     Indication: DEPRESSION
     Route: 048
     Dates: start: 20020101

REACTIONS (1)
  - DEPRESSED MOOD [None]
